FAERS Safety Report 9271566 (Version 2)
Quarter: 2013Q2

REPORT INFORMATION
  Report Type: Spontaneous
  Country: ES (occurrence: ES)
  Receive Date: 20130506
  Receipt Date: 20130521
  Transmission Date: 20140414
  Serious: Yes (Hospitalization)
  Sender: FDA-Public Use
  Company Number: ES-TEVA-400907ISR

PATIENT
  Age: 11 Year
  Sex: Female

DRUGS (1)
  1. OXCARBAZEPINE [Suspect]
     Dosage: 4800 MILLIGRAM DAILY;
     Route: 048

REACTIONS (4)
  - Toxicity to various agents [Recovered/Resolved]
  - Depressed level of consciousness [Recovered/Resolved]
  - Dysarthria [Recovered/Resolved]
  - Dyskinesia [Recovered/Resolved]
